FAERS Safety Report 5595480-2 (Version None)
Quarter: 2008Q1

REPORT INFORMATION
  Report Type: 
  Country: None (occurrence: None)
  Receive Date: 20080116
  Receipt Date: 20080116
  Transmission Date: 20080703
  Serious: Yes (Other)
  Sender: FDA-Public Use
  Company Number: None

PATIENT
  Sex: Male
  Weight: 92.9874 kg

DRUGS (2)
  1. FLUOXETINE HYDROCHLORIDE [Suspect]
     Indication: MENTAL DISORDER
     Dosage: 1 CAPSULE  1 IN MORNING  PO
     Route: 048
     Dates: start: 20010901, end: 20020826
  2. FLUOXETINE HYDROCHLORIDE [Suspect]
     Indication: MENTAL DISORDER
     Dosage: 1 CAPSULE  2 TIMES DAILY PO
     Route: 048
     Dates: start: 20020826, end: 20051231

REACTIONS (2)
  - CONDITION AGGRAVATED [None]
  - PHARMACEUTICAL PRODUCT COMPLAINT [None]
